FAERS Safety Report 10195455 (Version 1)
Quarter: 2014Q2

REPORT INFORMATION
  Report Type: Spontaneous
  Country: US (occurrence: US)
  Receive Date: 20140526
  Receipt Date: 20140526
  Transmission Date: 20141212
  Serious: No
  Sender: FDA-Public Use
  Company Number: US-009507513-1405USA009855

PATIENT
  Age: 22 Year
  Sex: Female
  Weight: 66.21 kg

DRUGS (1)
  1. IMPLANON [Suspect]
     Indication: CONTRACEPTION
     Dosage: 1 ROD UP TO 3 YEARS
     Route: 059
     Dates: start: 20110511

REACTIONS (3)
  - Back pain [Unknown]
  - Asthenia [Unknown]
  - Incorrect drug administration duration [Unknown]
